FAERS Safety Report 7674503-0 (Version None)
Quarter: 2011Q3

REPORT INFORMATION
  Report Type: 
  Country: None (occurrence: None)
  Receive Date: 20110810
  Receipt Date: 20110727
  Transmission Date: 20111222
  Serious: Yes (Other)
  Sender: FDA-Public Use
  Company Number: PHHY2011BR68372

PATIENT
  Sex: Female

DRUGS (6)
  1. DIOVAN [Suspect]
     Indication: HYPERTENSION
     Dosage: 80 MG, DAILY
     Route: 048
  2. SYNTHROID [Concomitant]
     Indication: HYPOTHYROIDISM
     Dosage: 88 MCG, DAILY
     Route: 048
  3. LEVEMIR [Concomitant]
     Indication: DIABETES MELLITUS
     Dosage: 12UI AT NIGHT
     Route: 058
  4. DIOVAN [Suspect]
     Dosage: 2 TABLETS OF 80 MG, DAILY
  5. NOVORAPID [Concomitant]
     Indication: DIABETES MELLITUS
     Dosage: 4 UI IN THE MORNING, IN THE LUCH AND IN THE AFTERNOON, 6 UI AT NIGHT
     Route: 058
  6. DIOVAN [Suspect]
     Dosage: 2 TABLETS OF 160 MG, DAILY

REACTIONS (3)
  - NECK PAIN [None]
  - TYPE 2 DIABETES MELLITUS [None]
  - BLOOD PRESSURE INCREASED [None]
